FAERS Safety Report 18716754 (Version 2)
Quarter: 2021Q1

REPORT INFORMATION
  Report Type: Report from Study
  Country: US (occurrence: US)
  Receive Date: 20210108
  Receipt Date: 20210115
  Transmission Date: 20210419
  Serious: No
  Sender: FDA-Public Use
  Company Number: US-SUNOVION-2020SUN003896

PATIENT
  Sex: Male

DRUGS (10)
  1. CARBIDOPA. [Concomitant]
     Active Substance: CARBIDOPA
     Dosage: UNK
     Dates: end: 20201223
  2. LEVODOPA [Concomitant]
     Active Substance: LEVODOPA
     Dosage: UNK
     Dates: end: 20210105
  3. KYNMOBI [Suspect]
     Active Substance: APOMORPHINE HYDROCHLORIDE
     Dosage: 20 MG
     Route: 060
     Dates: start: 20210105
  4. CARBIDOPA. [Concomitant]
     Active Substance: CARBIDOPA
     Dosage: UNK
     Dates: end: 20210105
  5. KYNMOBI [Suspect]
     Active Substance: APOMORPHINE HYDROCHLORIDE
     Dosage: 10 MG
     Route: 060
     Dates: start: 20201223
  6. CARBIDOPA. [Concomitant]
     Active Substance: CARBIDOPA
     Dosage: UNK
     Dates: end: 20201230
  7. LEVODOPA [Concomitant]
     Active Substance: LEVODOPA
     Dosage: UNK
     Dates: end: 20201230
  8. TIGAN [Concomitant]
     Active Substance: TRIMETHOBENZAMIDE HYDROCHLORIDE
  9. LEVODOPA [Concomitant]
     Active Substance: LEVODOPA
     Dosage: UNK
     Dates: end: 20201223
  10. KYNMOBI [Suspect]
     Active Substance: APOMORPHINE HYDROCHLORIDE
     Dosage: 15 MG
     Route: 060
     Dates: start: 20201230

REACTIONS (13)
  - Nausea [Recovered/Resolved]
  - Thinking abnormal [Recovering/Resolving]
  - Asthenia [Recovered/Resolved]
  - Rhinorrhoea [Recovered/Resolved]
  - Confusional state [Recovered/Resolved]
  - Movement disorder [Recovered/Resolved]
  - Head discomfort [Recovered/Resolved]
  - Yawning [Recovered/Resolved]
  - Balance disorder [Recovered/Resolved]
  - Musculoskeletal stiffness [Recovered/Resolved]
  - Dizziness [Recovered/Resolved]
  - Hyperhidrosis [Recovered/Resolved]
  - Somnolence [Recovered/Resolved]

NARRATIVE: CASE EVENT DATE: 20201223
